FAERS Safety Report 24436020 (Version 2)
Quarter: 2025Q2

REPORT INFORMATION
  Report Type: Spontaneous
  Country: US (occurrence: US)
  Receive Date: 20241015
  Receipt Date: 20250512
  Transmission Date: 20250717
  Serious: Yes (Other)
  Sender: SANOFI AVENTIS
  Company Number: US-SA-2024SA288845

PATIENT
  Age: 64 Year
  Sex: Female
  Weight: 207.6 kg

DRUGS (5)
  1. KEVZARA [Suspect]
     Active Substance: SARILUMAB
     Indication: Rheumatoid arthritis
     Dosage: 200 MG, QOW
     Route: 058
  2. OXYBUTYNIN CHLORIDE [Concomitant]
     Active Substance: OXYBUTYNIN CHLORIDE
  3. LISINOPRIL [Concomitant]
     Active Substance: LISINOPRIL
  4. CRESTOR [Concomitant]
     Active Substance: ROSUVASTATIN CALCIUM
  5. VENLAFAXINE HCL [Concomitant]
     Active Substance: VENLAFAXINE HYDROCHLORIDE

REACTIONS (3)
  - Rheumatoid arthritis [Unknown]
  - Pain [Unknown]
  - Product dose omission issue [Unknown]
